FAERS Safety Report 4511051-0 (Version None)
Quarter: 2004Q4

REPORT INFORMATION
  Report Type: 
  Country: None (occurrence: None)
  Receive Date: 20041018
  Receipt Date: 20040912
  Transmission Date: 20050328
  Serious: No
  Sender: FDA-Public Use
  Company Number: 209015

PATIENT
  Age: 58 Year
  Sex: Female

DRUGS (2)
  1. XOLAIR [Suspect]
     Indication: ASTHMA
  2. PREDNISONE [Concomitant]

REACTIONS (3)
  - ARTHRALGIA [None]
  - HERPES ZOSTER [None]
  - MYALGIA [None]
